FAERS Safety Report 24107736 (Version 2)
Quarter: 2024Q3

REPORT INFORMATION
  Report Type: Report from Study
  Country: EG (occurrence: EG)
  Receive Date: 20240718
  Receipt Date: 20240726
  Transmission Date: 20241016
  Serious: Yes (Hospitalization, Other)
  Sender: SANDOZ
  Company Number: EG-SANDOZ-SDZ2024EG064562

PATIENT
  Sex: Male

DRUGS (4)
  1. OMNITROPE [Suspect]
     Active Substance: SOMATROPIN
     Dosage: 1.2 MG, QD
     Route: 058
     Dates: start: 202405
  2. OMNITROPE [Suspect]
     Active Substance: SOMATROPIN
     Indication: Growth hormone deficiency
     Dosage: UNK
     Route: 058
     Dates: start: 2023
  3. CALCIUM [Concomitant]
     Active Substance: CALCIUM
     Indication: Mineral supplementation
     Dosage: 1 DF, QD (JUST TAKEN 2  WEEKS THEN  STOPPED)
     Route: 048
     Dates: start: 2023
  4. VITAMIN D [Concomitant]
     Active Substance: VITAMIN D NOS
     Indication: Vitamin supplementation
     Dosage: UNK (DROPS AND  TABLETS) (JUST TAKEN  FEW DAYS AND  THEN STOPPED)
     Route: 048
     Dates: start: 2023

REACTIONS (9)
  - Gastroenteritis [Unknown]
  - Hydrocephalus [Recovered/Resolved]
  - Drug administered in wrong device [Unknown]
  - Off label use [Unknown]
  - Incorrect dose administered [Unknown]
  - Device use issue [Unknown]
  - Product dose omission issue [Unknown]
  - Device issue [Unknown]
  - Expired device used [Unknown]

NARRATIVE: CASE EVENT DATE: 20230101
